FAERS Safety Report 7374632-5 (Version None)
Quarter: 2011Q1

REPORT INFORMATION
  Report Type: 
  Country: None (occurrence: None)
  Receive Date: 20110325
  Receipt Date: 20100701
  Transmission Date: 20110831
  Serious: No
  Sender: FDA-Public Use
  Company Number: US-MYLANLABS-2010S1009156

PATIENT
  Age: 43 Year
  Sex: Male

DRUGS (2)
  1. FENTANYL-100 [Suspect]
     Indication: PAIN
     Dosage: CHANGED Q48H
     Route: 062
     Dates: start: 20100510, end: 20100610
  2. HYDROCODONE BITARTRATE [Concomitant]

REACTIONS (5)
  - TREMOR [None]
  - DRUG EFFECT INCREASED [None]
  - HOT FLUSH [None]
  - APPLICATION SITE RASH [None]
  - DRUG INEFFECTIVE [None]
